FAERS Safety Report 8611716-5 (Version None)
Quarter: 2012Q3

REPORT INFORMATION
  Report Type: 
  Country: None (occurrence: None)
  Receive Date: 20120822
  Receipt Date: 20120814
  Transmission Date: 20120928
  Serious: Yes (Hospitalization)
  Sender: FDA-Public Use
  Company Number: US-BAYER-2010-001222

PATIENT
  Age: 18 Year
  Sex: Female
  Weight: 70.295 kg

DRUGS (4)
  1. TYLENOL [Concomitant]
     Indication: PAIN
     Dosage: UNK
     Route: 048
     Dates: start: 20070403
  2. YAZ [Suspect]
     Dosage: UNK
     Dates: start: 20040401, end: 20081101
  3. IBUPROFEN [Concomitant]
     Dosage: AS NEEDED
  4. YASMIN [Suspect]
     Indication: ACNE
     Dosage: UNK
     Dates: start: 20040401, end: 20081101

REACTIONS (2)
  - CHOLECYSTITIS ACUTE [None]
  - GALLBLADDER DISORDER [None]
